FAERS Safety Report 5762137-4 (Version None)
Quarter: 2008Q2

REPORT INFORMATION
  Report Type: 
  Country: None (occurrence: None)
  Receive Date: 20080604
  Receipt Date: 20080521
  Transmission Date: 20081010
  Serious: Yes (Other)
  Sender: FDA-Public Use
  Company Number: 8031163

PATIENT
  Age: 41 Year
  Sex: Female

DRUGS (4)
  1. KEPPRA [Suspect]
     Indication: EPILEPSY
     Dosage: 250 MG 2/D PO
     Route: 048
     Dates: start: 20071001, end: 20080301
  2. KEPPRA [Suspect]
     Indication: EPILEPSY
     Dosage: PO
     Route: 048
     Dates: start: 20080301
  3. LAMICTAL [Suspect]
     Indication: EPILEPSY
     Dosage: 50 MG 2/D PO
     Route: 048
     Dates: start: 20000101, end: 20080101
  4. LAMICTAL [Suspect]
     Indication: EPILEPSY
     Dates: start: 20080101

REACTIONS (1)
  - CHOLELITHIASIS [None]
